FAERS Safety Report 9773675 (Version 1)
Quarter: 2013Q4

REPORT INFORMATION
  Report Type: Spontaneous
  Country: US (occurrence: US)
  Receive Date: 20131219
  Receipt Date: 20131219
  Transmission Date: 20140711
  Serious: No
  Sender: FDA-Public Use
  Company Number: US-MYLANLABS-2013S1022616

PATIENT
  Age: 75 Year
  Sex: Female
  Weight: 108.41 kg

DRUGS (12)
  1. ATORVASTATIN CALCIUM TABLETS [Suspect]
     Indication: BLOOD CHOLESTEROL INCREASED
     Route: 048
     Dates: start: 20130810, end: 20130811
  2. GLIPIZIDE TABLET [Suspect]
     Indication: DIABETES MELLITUS
     Route: 048
     Dates: start: 20130811, end: 20130811
  3. METFORMIN [Concomitant]
     Indication: DIABETES MELLITUS
  4. INSULIN [Concomitant]
     Indication: DIABETES MELLITUS
  5. LISINOPRIL [Concomitant]
     Indication: BLOOD PRESSURE INCREASED
  6. AMLODIPINE [Concomitant]
     Indication: BLOOD PRESSURE INCREASED
  7. METOPROLOL [Concomitant]
     Indication: BLOOD PRESSURE INCREASED
  8. FUROSEMIDE [Concomitant]
     Indication: SWELLING
  9. CLARITIN /00917501/ [Concomitant]
     Indication: HYPERSENSITIVITY
  10. BENADRYL [Concomitant]
     Indication: HYPERSENSITIVITY
  11. DETROL LA [Concomitant]
     Indication: HYPERTONIC BLADDER
  12. BENICAR [Concomitant]
     Indication: BLOOD PRESSURE INCREASED

REACTIONS (1)
  - Hypersensitivity [Recovered/Resolved]
